FAERS Safety Report 11415430 (Version 2)
Quarter: 2015Q4

REPORT INFORMATION
  Report Type: Spontaneous
  Country: US (occurrence: US)
  Receive Date: 20150825
  Receipt Date: 20151007
  Transmission Date: 20160304
  Serious: Yes (Death, Other)
  Sender: FDA-Public Use
  Company Number: US-ASTRAZENECA-2015SE79857

PATIENT
  Age: 724 Month
  Sex: Male
  Weight: 118 kg

DRUGS (9)
  1. BYETTA [Suspect]
     Active Substance: EXENATIDE
     Route: 065
     Dates: start: 20110801, end: 20121024
  2. TORSEMIDE. [Concomitant]
     Active Substance: TORSEMIDE
  3. FAMOTIDINE. [Concomitant]
     Active Substance: FAMOTIDINE
  4. AMLODIPINE [Concomitant]
     Active Substance: AMLODIPINE BESYLATE
  5. METHYLPREDNISOLONE. [Concomitant]
     Active Substance: METHYLPREDNISOLONE
  6. BYETTA [Suspect]
     Active Substance: EXENATIDE
     Route: 065
     Dates: start: 20110801
  7. JANUMET [Suspect]
     Active Substance: METFORMIN HYDROCHLORIDE\SITAGLIPTIN PHOSPHATE
     Route: 065
     Dates: start: 20080204, end: 20081222
  8. JANUMET [Suspect]
     Active Substance: METFORMIN HYDROCHLORIDE\SITAGLIPTIN PHOSPHATE
     Dosage: 50-1000 MG TWICE DAILY
     Route: 065
     Dates: start: 20080107
  9. JANUVIA [Suspect]
     Active Substance: SITAGLIPTIN PHOSPHATE
     Route: 065
     Dates: start: 20070905, end: 20071130

REACTIONS (4)
  - Metastases to liver [Fatal]
  - Acute kidney injury [Fatal]
  - Jaundice [Unknown]
  - Pancreatic neuroendocrine tumour metastatic [Fatal]

NARRATIVE: CASE EVENT DATE: 201310
